FAERS Safety Report 13750737 (Version 1)
Quarter: 2017Q3

REPORT INFORMATION
  Report Type: Spontaneous
  Country: US (occurrence: US)
  Receive Date: 20170713
  Receipt Date: 20170713
  Transmission Date: 20171127
  Serious: No
  Sender: FDA-Public Use
  Company Number: US-ASTELLAS-2017US003567

PATIENT
  Sex: Male

DRUGS (2)
  1. MYRBETRIQ [Suspect]
     Active Substance: MIRABEGRON
     Indication: PRODUCT USED FOR UNKNOWN INDICATION
     Route: 065
  2. MYRBETRIQ [Suspect]
     Active Substance: MIRABEGRON
     Route: 065

REACTIONS (8)
  - Muscle spasms [Unknown]
  - Dysuria [Unknown]
  - Intentional product misuse [Unknown]
  - Drug dose omission [Unknown]
  - Urine flow decreased [Unknown]
  - Constipation [Unknown]
  - Urinary incontinence [Unknown]
  - Urinary tract infection [Unknown]
